FAERS Safety Report 21776310 (Version 1)
Quarter: 2022Q4

REPORT INFORMATION
  Report Type: Spontaneous
  Country: US (occurrence: US)
  Receive Date: 20221226
  Receipt Date: 20221226
  Transmission Date: 20230112
  Serious: No
  Sender: FDA-Public Use
  Company Number: US-MIGRATION_PFIZER-2022BHV002636

PATIENT
  Age: 60 Year
  Sex: Female
  Weight: 90.800 kg

DRUGS (3)
  1. NURTEC ODT [Suspect]
     Active Substance: RIMEGEPANT SULFATE
     Indication: Migraine
     Dosage: 1 TABLET; PATIENT STATED THAT SHE FIRST TRIED NURTEC IN NOVEMBER 2020, AND STARTED TAKING IT OVER SI
     Route: 048
     Dates: start: 202011
  2. NURTEC ODT [Suspect]
     Active Substance: RIMEGEPANT SULFATE
     Indication: Headache
  3. TRUDHESA [Concomitant]
     Active Substance: DIHYDROERGOTAMINE MESYLATE
     Indication: Product used for unknown indication
     Dosage: PATIENT STATED THAT SHE TAKES TRUDHESA, SHE FOLLOWS UP AND USES ONE AND THEN THE OTHER (NURTEC AND T
     Route: 065

REACTIONS (1)
  - Therapeutic product effect variable [Unknown]
